FAERS Safety Report 5567913-9 (Version None)
Quarter: 2007Q4

REPORT INFORMATION
  Report Type: 
  Country: None (occurrence: None)
  Receive Date: 20071218
  Receipt Date: 20071218
  Transmission Date: 20080405
  Serious: No
  Sender: FDA-Public Use
  Company Number: None

PATIENT
  Age: 62 Year
  Sex: Male
  Weight: 90.7194 kg

DRUGS (7)
  1. HALOPERIDOL DECANOATE [Suspect]
     Dosage: 50MG IM Q 2 WKS IM
     Route: 030
  2. DIVALPROEX SODIUM [Suspect]
     Dosage: 500MG ER BID PO
     Route: 048
  3. ASPIRIN [Concomitant]
  4. ENALAPRIL [Concomitant]
  5. BENZTROPINE [Concomitant]
  6. SALSALATE [Concomitant]
  7. METFORMIN HCL [Concomitant]

REACTIONS (3)
  - COORDINATION ABNORMAL [None]
  - MUSCLE TWITCHING [None]
  - TARDIVE DYSKINESIA [None]
